FAERS Safety Report 7505350-8 (Version None)
Quarter: 2011Q2

REPORT INFORMATION
  Report Type: 
  Country: None (occurrence: None)
  Receive Date: 20110420
  Receipt Date: 20110224
  Transmission Date: 20111010
  Serious: Yes (Hospitalization)
  Sender: FDA-Public Use
  Company Number: PNT1-2010-00022

PATIENT
  Age: 63 Year
  Sex: Male
  Weight: 85.3 kg

DRUGS (18)
  1. NIACIN [Concomitant]
  2. BISOPROLOL FUMARATE AND HYDROCHLOROTHIAZIDE (BISOPROLOL FUMARATE, HYDR [Concomitant]
  3. FIBER (POLYCARBOPHIL CALCIUM) [Concomitant]
  4. ASPIRIN [Concomitant]
  5. SPD476 VS PLACEBO (CODE NOT BROKEN) TABLET [Suspect]
     Indication: DIVERTICULITIS
     Dosage: 4 DF, 1X/DAY:QD
     Dates: start: 20090709
  6. D5LRS (CALCIUM CHLORIDE DIHYDRATE, GLUCOSE, POTASSIUM CHLORIDE, SODIUM [Concomitant]
  7. PHENERGAN /00033001/ (PROMETHAZINE) [Concomitant]
  8. GLUCOSAMINE + CHONDROITIN /01430901/ (CHONDROITIN SULFATE, GLUCOSAMINE [Concomitant]
  9. ZOFRAN /00955302/ (ONDANSETRON HYDROCHLORIDE) [Concomitant]
  10. XANAX [Concomitant]
  11. MORPHINE [Concomitant]
  12. NIACIN [Concomitant]
  13. FENOFIBRATE [Concomitant]
  14. LISINOPRIL [Concomitant]
  15. FISH OIL (FISH OIL) [Concomitant]
  16. ALEVE [Concomitant]
  17. PANTOPRAZOLE SODIUM [Concomitant]
  18. LEVOTHYROXINE SODIUM [Concomitant]

REACTIONS (1)
  - GASTRITIS [None]
